FAERS Safety Report 20086592 (Version 3)
Quarter: 2021Q4

REPORT INFORMATION
  Report Type: Report from Study
  Country: US (occurrence: US)
  Receive Date: 20211118
  Receipt Date: 20211215
  Transmission Date: 20220303
  Serious: Yes (Hospitalization, Other)
  Sender: FDA-Public Use
  Company Number: US-BAYER-2021A239206

PATIENT
  Age: 55 Year
  Sex: Female

DRUGS (2)
  1. STIVARGA [Suspect]
     Active Substance: REGORAFENIB
     Indication: Colorectal cancer
     Dosage: 160 MG DAILY
     Route: 048
     Dates: start: 20211011, end: 20211026
  2. STIVARGA [Suspect]
     Active Substance: REGORAFENIB
     Indication: Colorectal cancer
     Dosage: 80 MG, QD FOR 21 DAYS OF A 28 DAY CYCLE
     Route: 048

REACTIONS (12)
  - Pulmonary embolism [Not Recovered/Not Resolved]
  - Urinary tract infection [Not Recovered/Not Resolved]
  - Haematuria [Recovering/Resolving]
  - Renal disorder [Not Recovered/Not Resolved]
  - Nephrostomy [Not Recovered/Not Resolved]
  - Pyrexia [Not Recovered/Not Resolved]
  - Hospitalisation [Unknown]
  - Blister [Recovered/Resolved]
  - Urticaria [Not Recovered/Not Resolved]
  - Loss of personal independence in daily activities [None]
  - Blood pressure increased [Not Recovered/Not Resolved]
  - Product dose omission issue [None]
